FAERS Safety Report 9019614 (Version 2)
Quarter: 2014Q1

REPORT INFORMATION
  Report Type: Report from Study
  Country: IT (occurrence: IT)
  Receive Date: 20130118
  Receipt Date: 20140103
  Transmission Date: 20141002
  Serious: Yes (Other)
  Sender: FDA-Public Use
  Company Number: IT-ROCHE-1177961

PATIENT
  Sex: 0

DRUGS (4)
  1. BEVACIZUMAB [Suspect]
     Indication: METASTASES TO LARGE INTESTINE
     Route: 065
  2. BEVACIZUMAB [Suspect]
     Indication: METASTASES TO LIVER
  3. OXALIPLATIN [Suspect]
     Indication: METASTASES TO LARGE INTESTINE
     Route: 065
  4. IRINOTECAN [Suspect]
     Indication: METASTASES TO LARGE INTESTINE
     Route: 065

REACTIONS (7)
  - Hepatic steatosis [Unknown]
  - Nodular regenerative hyperplasia [Unknown]
  - Periportal sinus dilatation [Unknown]
  - Venoocclusive liver disease [Unknown]
  - Fibrosis [Unknown]
  - Hepatic fibrosis [Unknown]
  - Hepatic steatosis [Unknown]
